FAERS Safety Report 21858305 (Version 3)
Quarter: 2023Q1

REPORT INFORMATION
  Report Type: Spontaneous
  Country: US (occurrence: US)
  Receive Date: 20230113
  Receipt Date: 20230328
  Transmission Date: 20230417
  Serious: Yes (Other)
  Sender: FDA-Public Use
  Company Number: US-BRISTOL-MYERS SQUIBB COMPANY-2023-005304

PATIENT
  Age: 65 Year
  Sex: Female
  Weight: 53.97 kg

DRUGS (3)
  1. REVLIMID [Suspect]
     Active Substance: LENALIDOMIDE
     Indication: Diffuse large B-cell lymphoma
     Dosage: DAY 1-21 Q 28 DAYS
     Route: 048
  2. REVLIMID [Suspect]
     Active Substance: LENALIDOMIDE
     Dosage: 15MG DAYS 1-21 EVERY 28 DAYS
     Route: 048
     Dates: start: 20221214, end: 20230105
  3. REVLIMID [Suspect]
     Active Substance: LENALIDOMIDE
     Dosage: 10 MG DAILY X 21 DAYS ON AND 7 DAYS OFF
     Route: 048

REACTIONS (8)
  - Anal ulcer [Not Recovered/Not Resolved]
  - Off label use [Unknown]
  - Full blood count decreased [Unknown]
  - Pneumonia [Recovering/Resolving]
  - Renal disorder [Unknown]
  - Hypoaesthesia [Recovering/Resolving]
  - Weight increased [Recovering/Resolving]
  - Hip fracture [Recovering/Resolving]
